FAERS Safety Report 10705245 (Version 4)
Quarter: 2016Q2

REPORT INFORMATION
  Report Type: Spontaneous
  Country: US (occurrence: US)
  Receive Date: 20150112
  Receipt Date: 20160517
  Transmission Date: 20160815
  Serious: Yes (Other)
  Sender: FDA-Public Use
  Company Number: US-ELI_LILLY_AND_COMPANY-US201501000795

PATIENT
  Sex: Male

DRUGS (17)
  1. CYMBALTA [Suspect]
     Active Substance: DULOXETINE HYDROCHLORIDE
     Dosage: 60 MG, QD
     Route: 048
     Dates: start: 20120827, end: 2013
  2. GABAPENTIN. [Concomitant]
     Active Substance: GABAPENTIN
     Indication: ARTHRALGIA
     Dosage: 100 MG, UNK
     Dates: start: 20110506
  3. FLECTOR /00372302/ [Concomitant]
     Active Substance: DICLOFENAC SODIUM
     Indication: PAIN
     Dosage: UNK
     Route: 062
     Dates: start: 20120606
  4. MEDROL [Concomitant]
     Active Substance: METHYLPREDNISOLONE
     Indication: BONE PAIN
     Dosage: UNK
     Dates: start: 20120924
  5. DILAUDID [Concomitant]
     Active Substance: HYDROMORPHONE HYDROCHLORIDE
     Dosage: 2 MG, UNK
     Dates: start: 20120924
  6. PERCOCET [Concomitant]
     Active Substance: ACETAMINOPHEN\OXYCODONE HYDROCHLORIDE
     Indication: ARTHRALGIA
     Dosage: 1 DF, EVERY 6 HRS
  7. VALIUM [Concomitant]
     Active Substance: DIAZEPAM
     Indication: ANXIETY
     Dosage: 5 MG, BID
  8. FLECTOR /00372302/ [Concomitant]
     Active Substance: DICLOFENAC SODIUM
     Indication: INFLAMMATION
  9. CYMBALTA [Suspect]
     Active Substance: DULOXETINE HYDROCHLORIDE
     Indication: DEPRESSION
     Dosage: UNK, UNKNOWN
     Route: 048
     Dates: start: 2010
  10. NORCO [Concomitant]
     Active Substance: ACETAMINOPHEN\HYDROCODONE BITARTRATE
     Indication: PAIN
  11. TRAMADOL. [Concomitant]
     Active Substance: TRAMADOL
     Indication: ARTHRALGIA
     Dosage: 50 MG, EVERY 6 HRS
  12. MOTRIN [Concomitant]
     Active Substance: IBUPROFEN
     Indication: PAIN IN EXTREMITY
     Dosage: 800 MG, TID
     Dates: start: 20120924
  13. DILAUDID [Concomitant]
     Active Substance: HYDROMORPHONE HYDROCHLORIDE
     Indication: BONE PAIN
     Dosage: 4 MG, OTHER
     Dates: start: 20120612
  14. MARIJUANA [Concomitant]
     Active Substance: CANNABIS SATIVA SUBSP. INDICA TOP
     Indication: MEDICAL CANNABIS THERAPY
     Dosage: 1 DF, PRN
  15. NUCYNTA [Concomitant]
     Active Substance: TAPENTADOL HYDROCHLORIDE
     Indication: ARTHRALGIA
     Dosage: 100 MG, UNK
     Route: 065
     Dates: start: 20110506
  16. PERCOCET [Concomitant]
     Active Substance: ACETAMINOPHEN\OXYCODONE HYDROCHLORIDE
     Dosage: 5 MG, UNK
     Dates: start: 20120612
  17. PERCOCET [Concomitant]
     Active Substance: ACETAMINOPHEN\OXYCODONE HYDROCHLORIDE
     Dosage: 10 MG, TID
     Dates: start: 20120924

REACTIONS (16)
  - Nightmare [Unknown]
  - Nausea [Unknown]
  - Withdrawal syndrome [Unknown]
  - Mood swings [Unknown]
  - Insomnia [Unknown]
  - Dizziness [Unknown]
  - Suicidal ideation [Unknown]
  - Suicide attempt [Unknown]
  - Agitation [Unknown]
  - Cardiac disorder [Unknown]
  - Aggression [Unknown]
  - Sleep disorder [Unknown]
  - Vertigo [Unknown]
  - Paraesthesia [Unknown]
  - Loss of consciousness [Unknown]
  - Irritability [Unknown]

NARRATIVE: CASE EVENT DATE: 2013
